FAERS Safety Report 13130503 (Version 1)
Quarter: 2017Q1

REPORT INFORMATION
  Report Type: Spontaneous
  Country: US (occurrence: US)
  Receive Date: 20170119
  Receipt Date: 20170119
  Transmission Date: 20170428
  Serious: No
  Sender: FDA-Public Use
  Company Number: US-BAYER-2017-010898

PATIENT
  Age: 53 Year
  Sex: Female
  Weight: 43 kg

DRUGS (2)
  1. ALEVE [Suspect]
     Active Substance: NAPROXEN SODIUM
     Indication: PAIN
     Dosage: 1 DF, UNK (USED FOR ABOUT 10 YEARS)
     Route: 048
     Dates: end: 2013
  2. ALEVE [Suspect]
     Active Substance: NAPROXEN SODIUM
     Dosage: 1 DF, UNK (USED FOR ABOUT 10 YEARS)
     Route: 048
     Dates: start: 2013

REACTIONS (3)
  - Product use issue [Unknown]
  - Expired product administered [Unknown]
  - Drug ineffective [Unknown]

NARRATIVE: CASE EVENT DATE: 2011
